FAERS Safety Report 24175745 (Version 1)
Quarter: 2024Q3

REPORT INFORMATION
  Report Type: Spontaneous
  Country: CN (occurrence: None)
  Receive Date: 20240805
  Receipt Date: 20240805
  Transmission Date: 20241017
  Serious: Yes (Other)
  Sender: ASTRAZENECA
  Company Number: 2024A174259

PATIENT
  Age: 22498 Day
  Sex: Male
  Weight: 70 kg

DRUGS (1)
  1. DAPAGLIFLOZIN [Suspect]
     Active Substance: DAPAGLIFLOZIN
     Indication: Blood glucose increased
     Route: 048
     Dates: start: 20240507, end: 20240717

REACTIONS (1)
  - Marasmus [Recovering/Resolving]

NARRATIVE: CASE EVENT DATE: 20240717
